FAERS Safety Report 19850261 (Version 5)
Quarter: 2021Q4

REPORT INFORMATION
  Report Type: Spontaneous
  Country: US (occurrence: US)
  Receive Date: 20210917
  Receipt Date: 20211115
  Transmission Date: 20220303
  Serious: Yes (Other)
  Sender: FDA-Public Use
  Company Number: US-PFIZER INC-202101206898

PATIENT
  Age: 22 Year
  Sex: Male
  Weight: 68 kg

DRUGS (6)
  1. EFFEXOR XR [Suspect]
     Active Substance: VENLAFAXINE HYDROCHLORIDE
     Indication: Anxiety
     Dosage: 150MG, 1X/DAY
     Dates: start: 200003, end: 201408
  2. ALBUTEROL SULFATE [Concomitant]
     Active Substance: ALBUTEROL SULFATE
     Dosage: UNK, AS NEEDED
     Dates: start: 2000
  3. KLONOPIN [Concomitant]
     Active Substance: CLONAZEPAM
     Indication: Seizure
     Dosage: 1 MG, 1X/DAY
     Dates: start: 200003, end: 201408
  4. KLONOPIN [Concomitant]
     Active Substance: CLONAZEPAM
     Indication: Anxiety
  5. WELLBUTRIN [Concomitant]
     Active Substance: BUPROPION HYDROCHLORIDE
     Indication: Depression
     Dosage: 150 MG
     Dates: start: 200003, end: 201408
  6. WELLBUTRIN [Concomitant]
     Active Substance: BUPROPION HYDROCHLORIDE
     Indication: Anxiety

REACTIONS (30)
  - Erectile dysfunction [Not Recovered/Not Resolved]
  - Dementia [Unknown]
  - Nasal congestion [Not Recovered/Not Resolved]
  - Mental impairment [Unknown]
  - Drug dependence [Unknown]
  - Alopecia [Not Recovered/Not Resolved]
  - Hair colour changes [Unknown]
  - Hypertrichosis [Unknown]
  - Hirsutism [Not Recovered/Not Resolved]
  - Bruxism [Not Recovered/Not Resolved]
  - Bladder disorder [Not Recovered/Not Resolved]
  - Nasal septum deviation [Unknown]
  - Illness [Unknown]
  - Weight increased [Not Recovered/Not Resolved]
  - Amnesia [Unknown]
  - Bladder dysfunction [Not Recovered/Not Resolved]
  - Tremor [Unknown]
  - Dysgraphia [Unknown]
  - Salivary hypersecretion [Not Recovered/Not Resolved]
  - Hypersexuality [Unknown]
  - Abnormal behaviour [Unknown]
  - Insomnia [Unknown]
  - Headache [Unknown]
  - Restless legs syndrome [Unknown]
  - Disturbance in attention [Unknown]
  - Hypertension [Unknown]
  - Withdrawal syndrome [Unknown]
  - Chills [Unknown]
  - Vomiting [Unknown]
  - Feeding disorder [Unknown]

NARRATIVE: CASE EVENT DATE: 20000101
